FAERS Safety Report 10413500 (Version 1)
Quarter: 2014Q2

REPORT INFORMATION
  Report Type: Spontaneous
  Country: US (occurrence: None)
  Receive Date: 20140530
  Receipt Date: 20140530
  Transmission Date: 20141212
  Serious: No
  Sender: FDA-Public Use
  Company Number: 226929

PATIENT
  Age: 59 Year
  Sex: Male

DRUGS (1)
  1. PICATO (INGENOL MEBUTATE) (0.015 %, GEL) [Suspect]
     Indication: ACTINIC KERATOSIS
     Dosage: DERMAL, 1 IN 1 D
     Dates: start: 20140326

REACTIONS (6)
  - Application site burn [None]
  - Application site vesicles [None]
  - Application site discharge [None]
  - Application site exfoliation [None]
  - Application site erosion [None]
  - Application site erythema [None]
